FAERS Safety Report 23811344 (Version 2)
Quarter: 2024Q2

REPORT INFORMATION
  Report Type: Spontaneous
  Country: US (occurrence: US)
  Receive Date: 20240503
  Receipt Date: 20240529
  Transmission Date: 20240716
  Serious: Yes (Other)
  Sender: FDA-Public Use
  Company Number: US-BRISTOL-MYERS SQUIBB COMPANY-2024-068677

PATIENT
  Age: 84 Year
  Sex: Female

DRUGS (3)
  1. ELIQUIS [Suspect]
     Active Substance: APIXABAN
     Indication: Product used for unknown indication
     Route: 048
  2. ELIQUIS [Suspect]
     Active Substance: APIXABAN
     Route: 048
  3. BONIVA [Suspect]
     Active Substance: IBANDRONATE SODIUM
     Indication: Product used for unknown indication

REACTIONS (8)
  - Fall [Unknown]
  - Clavicle fracture [Unknown]
  - Blood pressure abnormal [Unknown]
  - Decreased appetite [Unknown]
  - Lung disorder [Unknown]
  - Fatigue [Unknown]
  - Femur fracture [Unknown]
  - Apathy [Unknown]
